FAERS Safety Report 11501811 (Version 1)
Quarter: 2015Q3

REPORT INFORMATION
  Report Type: Spontaneous
  Country: US (occurrence: None)
  Receive Date: 20150914
  Receipt Date: 20150914
  Transmission Date: 20151125
  Serious: No
  Sender: FDA-Public Use
  Company Number: ADR-2007-4367

PATIENT
  Age: 46 Year
  Sex: Male

DRUGS (2)
  1. LIORESAL [Suspect]
     Active Substance: BACLOFEN
     Indication: PRODUCT USED FOR UNKNOWN INDICATION
     Dosage: 70 MCG/DAY
  2. ORAL BACLOFEN [Suspect]
     Active Substance: BACLOFEN
     Dosage: UNK

REACTIONS (14)
  - Implant site pain [None]
  - Medical device pain [None]
  - Tooth loss [None]
  - Skin haemorrhage [None]
  - Medical device site bruise [None]
  - Gingival recession [None]
  - Malaise [None]
  - Condition aggravated [None]
  - Tooth discolouration [None]
  - Back pain [None]
  - Tremor [None]
  - Hyperhidrosis [None]
  - Medical device site erythema [None]
  - Nausea [None]
